FAERS Safety Report 6737976-3 (Version None)
Quarter: 2010Q2

REPORT INFORMATION
  Report Type: 
  Country: None (occurrence: None)
  Receive Date: 20100520
  Receipt Date: 20100511
  Transmission Date: 20101027
  Serious: Yes (Hospitalization)
  Sender: FDA-Public Use
  Company Number: 2010-001

PATIENT
  Age: 25 Year
  Sex: Male

DRUGS (1)
  1. DEGREE MEN DEODORANT CLEAN REACTION [Suspect]
     Dosage: ONE TIME UNDER ARMS
     Dates: start: 20100403, end: 20100405

REACTIONS (2)
  - RASH [None]
  - STAPHYLOCOCCAL INFECTION [None]
